FAERS Safety Report 6904587-6 (Version None)
Quarter: 2010Q3

REPORT INFORMATION
  Report Type: 
  Country: None (occurrence: None)
  Receive Date: 20100804
  Receipt Date: 20090616
  Transmission Date: 20110219
  Serious: No
  Sender: FDA-Public Use
  Company Number: US-PFIZER INC-2009194603

PATIENT
  Sex: Female
  Weight: 53.1 kg

DRUGS (1)
  1. LYRICA [Suspect]
     Indication: PERIPHERAL NERVE INJURY
     Dosage: 50 MG, 3X/DAY
     Dates: start: 20081201

REACTIONS (5)
  - FEELING ABNORMAL [None]
  - HYPOAESTHESIA [None]
  - PAIN [None]
  - PRURITUS [None]
  - RASH [None]
